FAERS Safety Report 8376578-2 (Version None)
Quarter: 2012Q2

REPORT INFORMATION
  Report Type: 
  Country: None (occurrence: None)
  Receive Date: 20120522
  Receipt Date: 20120521
  Transmission Date: 20120825
  Serious: Yes (Other)
  Sender: FDA-Public Use
  Company Number: JP-PFIZER INC-2012114773

PATIENT
  Age: 85 Year
  Sex: Female

DRUGS (1)
  1. FLUCONAZOLE [Suspect]
     Dosage: UNK
     Route: 042
     Dates: start: 20120509

REACTIONS (1)
  - MELAENA [None]
